FAERS Safety Report 8589914-9 (Version None)
Quarter: 2012Q3

REPORT INFORMATION
  Report Type: 
  Country: None (occurrence: None)
  Receive Date: 20120813
  Receipt Date: 20120806
  Transmission Date: 20120928
  Serious: Yes (Hospitalization, Other)
  Sender: FDA-Public Use
  Company Number: PHHY2012JP043449

PATIENT
  Sex: Female

DRUGS (3)
  1. ASPARA-L [Concomitant]
     Dosage: 300 MG
     Route: 048
     Dates: start: 20071206
  2. LASIX [Concomitant]
     Dosage: 20 MG
     Route: 048
     Dates: start: 19980522
  3. DIOVAN HCT [Suspect]
     Indication: HYPERTENSION
     Dosage: 1 DF, QD
     Route: 048
     Dates: start: 20090528, end: 20100720

REACTIONS (6)
  - RENAL FAILURE [None]
  - BLOOD UREA INCREASED [None]
  - DEMENTIA [None]
  - HYPERTENSION [None]
  - ANXIETY DISORDER [None]
  - DECREASED APPETITE [None]
